FAERS Safety Report 4496998-6 (Version None)
Quarter: 2004Q4

REPORT INFORMATION
  Report Type: 
  Country: None (occurrence: None)
  Receive Date: 20040928
  Receipt Date: 20040723
  Transmission Date: 20050328
  Serious: No
  Sender: FDA-Public Use
  Company Number: 04P-163-0268162-00

PATIENT
  Age: 71 Year
  Sex: Female
  Weight: 50.8029 kg

DRUGS (7)
  1. HUMIRA [Suspect]
     Indication: RHEUMATOID ARTHRITIS
     Dosage: 40 MG, 1 IN 2 WK, SUBCUTANEOUS
     Route: 058
     Dates: start: 20040628
  2. RISEDRONATE SODIUM [Concomitant]
  3. SPIRAVA [Concomitant]
  4. MULTI-VITAMINS [Concomitant]
  5. ASCORIC ACID [Concomitant]
  6. PRIMROSE OIL [Concomitant]
  7. CALCIUM [Concomitant]

REACTIONS (4)
  - DRY SKIN [None]
  - EYE PRURITUS [None]
  - GOITRE [None]
  - TINNITUS [None]
